FAERS Safety Report 19129796 (Version 1)
Quarter: 2021Q2

REPORT INFORMATION
  Report Type: Spontaneous
  Country: US (occurrence: US)
  Receive Date: 20210413
  Receipt Date: 20210413
  Transmission Date: 20210717
  Serious: No
  Sender: FDA-Public Use
  Company Number: US-TOPROL-2021000004

PATIENT
  Age: 54 Year
  Sex: Male

DRUGS (2)
  1. LOVASTATIN. [Concomitant]
     Active Substance: LOVASTATIN
  2. TOPROL XL [Suspect]
     Active Substance: METOPROLOL SUCCINATE

REACTIONS (2)
  - Blood glucose fluctuation [Unknown]
  - Blood glucose increased [Unknown]
